FAERS Safety Report 20050101 (Version 1)
Quarter: 2021Q4

REPORT INFORMATION
  Report Type: Spontaneous
  Country: US (occurrence: US)
  Receive Date: 20211109
  Receipt Date: 20211109
  Transmission Date: 20220303
  Serious: Yes (Other)
  Sender: FDA-Public Use
  Company Number: US-PFIZER INC-202101460384

PATIENT
  Age: 52 Year
  Sex: Female

DRUGS (10)
  1. FUROSEMIDE [Suspect]
     Active Substance: FUROSEMIDE
     Indication: Hyperkalaemia
     Dosage: 40 MG, 2X/DAY
     Route: 042
  2. FUROSEMIDE [Suspect]
     Active Substance: FUROSEMIDE
     Indication: Cardiac failure
     Dosage: 80 MG, 2X/DAY
     Route: 042
  3. FUROSEMIDE [Suspect]
     Active Substance: FUROSEMIDE
     Dosage: 20 MG/H
     Route: 042
  4. CHLOROTHIAZIDE [Suspect]
     Active Substance: CHLOROTHIAZIDE
     Indication: Cardiac failure
     Dosage: 250 MG, 2X/DAY
     Route: 042
  5. CHLOROTHIAZIDE [Suspect]
     Active Substance: CHLOROTHIAZIDE
     Dosage: 500 MG, 2X/DAY
     Route: 040
  6. INSULIN NOS [Concomitant]
     Active Substance: INSULIN NOS
     Indication: Hyperkalaemia
     Dosage: UNK
  7. DEXTROSE [Concomitant]
     Active Substance: DEXTROSE
     Indication: Hyperkalaemia
     Dosage: UNK
  8. ALBUMIN HUMAN SALT-POOR [Concomitant]
     Indication: Hepatorenal syndrome
     Dosage: UNK
  9. MIDODRINE [Concomitant]
     Active Substance: MIDODRINE
     Indication: Hepatorenal syndrome
     Dosage: UNK
  10. OCTREOTIDE [Concomitant]
     Active Substance: OCTREOTIDE
     Indication: Hepatorenal syndrome
     Dosage: UNK

REACTIONS (2)
  - Therapeutic product effect incomplete [Unknown]
  - Drug resistance [Unknown]
